FAERS Safety Report 4495945-0 (Version None)
Quarter: 2004Q4

REPORT INFORMATION
  Report Type: 
  Country: None (occurrence: None)
  Receive Date: 20041108
  Receipt Date: 20041028
  Transmission Date: 20050328
  Serious: Yes (Other)
  Sender: FDA-Public Use
  Company Number: JP-JNJFOC-20040705214

PATIENT
  Age: 60 Year
  Sex: Female

DRUGS (2)
  1. LEVOFLOXACIN [Suspect]
     Indication: URINARY TRACT INFECTION
     Dates: start: 20040314, end: 20040324
  2. LEVOFLOXACIN [Suspect]
     Dates: start: 20040314, end: 20040324

REACTIONS (1)
  - RHABDOMYOLYSIS [None]
